FAERS Safety Report 14354742 (Version 6)
Quarter: 2018Q2

REPORT INFORMATION
  Report Type: Spontaneous
  Country: PL (occurrence: PL)
  Receive Date: 20180105
  Receipt Date: 20180518
  Transmission Date: 20180711
  Serious: Yes (Other)
  Sender: FDA-Public Use
  Company Number: PL-BRISTOL-MYERS SQUIBB COMPANY-BMS-2017-119518

PATIENT
  Age: 75 Year
  Sex: Female

DRUGS (3)
  1. POLSART [Concomitant]
     Indication: HYPERTENSION
     Dosage: 40 MG, QD
     Route: 065
  2. NEDAL [Concomitant]
     Indication: PRODUCT USED FOR UNKNOWN INDICATION
     Dosage: 5 MG, BID
     Route: 065
  3. ELIQUIS [Suspect]
     Active Substance: APIXABAN
     Indication: CEREBROVASCULAR ACCIDENT PROPHYLAXIS
     Dosage: 5 MG, BID
     Route: 065
     Dates: start: 201711, end: 201804

REACTIONS (9)
  - Arthralgia [Not Recovered/Not Resolved]
  - Pain [Not Recovered/Not Resolved]
  - Pain in extremity [Not Recovered/Not Resolved]
  - Malaise [Unknown]
  - Gastrointestinal pain [Recovering/Resolving]
  - Dyspnoea [Unknown]
  - Myalgia [Not Recovered/Not Resolved]
  - Gait inability [Recovered/Resolved]
  - Atrial fibrillation [Unknown]
